FAERS Safety Report 9325728 (Version 1)
Quarter: 2013Q2

REPORT INFORMATION
  Report Type: Report from Study
  Country: GB (occurrence: GB)
  Receive Date: 20130604
  Receipt Date: 20130604
  Transmission Date: 20140414
  Serious: Yes (Hospitalization)
  Sender: FDA-Public Use
  Company Number: GB-UCBSA-087006

PATIENT
  Age: 54 Year
  Sex: Female
  Weight: 100 kg

DRUGS (9)
  1. CIMZIA [Suspect]
     Indication: RHEUMATOID ARTHRITIS
     Route: 058
     Dates: start: 20120201, end: 201211
  2. FOLIC ACID [Concomitant]
     Dosage: UNKNOWN DOSE
  3. OMEPRAZOLE [Concomitant]
     Dosage: UNKNOWN DOSE
  4. METHOTREXATE [Concomitant]
     Indication: RHEUMATOID ARTHRITIS
     Dosage: UNKNOWN DOSE
  5. HYDROXYCHLOROQUINE [Concomitant]
     Indication: RHEUMATOID ARTHRITIS
     Dosage: UNKNOWN DOSE
  6. BUMETANIDE [Concomitant]
     Dosage: UNKNOWN DOSE
  7. LISINOPRIL [Concomitant]
     Dosage: UNKNOWN DOSE
  8. NAPROXEN [Concomitant]
     Dosage: UNKNOWN DOSE
  9. PREDNISOLONE [Concomitant]
     Dosage: UNKNOWN DOSE

REACTIONS (1)
  - Pneumonia [Unknown]
